FAERS Safety Report 18462861 (Version 1)
Quarter: 2020Q4

REPORT INFORMATION
  Report Type: Spontaneous
  Country: GB (occurrence: GB)
  Receive Date: 20201104
  Receipt Date: 20201104
  Transmission Date: 20210114
  Serious: Yes (Other)
  Sender: FDA-Public Use
  Company Number: GB-ASTRAZENECA-2020SF39425

PATIENT
  Age: 32 Year
  Sex: Female
  Weight: 74 kg

DRUGS (5)
  1. PAROXETINE. [Concomitant]
     Active Substance: PAROXETINE
  2. DAPAGLIFLOZIN. [Suspect]
     Active Substance: DAPAGLIFLOZIN
     Indication: DIABETES MELLITUS
     Dosage: 10.0MG UNKNOWN
     Route: 048
     Dates: start: 20200224, end: 20200930
  3. HUMULIN L [Concomitant]
     Active Substance: INSULIN HUMAN
  4. ATORVASTATIN [Concomitant]
     Active Substance: ATORVASTATIN
  5. ZOLPIDEM [Concomitant]
     Active Substance: ZOLPIDEM TARTRATE

REACTIONS (1)
  - Diabetic ketoacidosis [Recovered/Resolved]

NARRATIVE: CASE EVENT DATE: 20200930
